FAERS Safety Report 5200311-6 (Version None)
Quarter: 2007Q1

REPORT INFORMATION
  Report Type: 
  Country: None (occurrence: None)
  Receive Date: 20070105
  Receipt Date: 20061227
  Transmission Date: 20070707
  Serious: Yes (Other)
  Sender: FDA-Public Use
  Company Number: FI-PFIZER INC-2006142952

PATIENT
  Age: 50 Year
  Sex: Male

DRUGS (7)
  1. LYRICA [Suspect]
     Indication: PAIN
     Route: 048
     Dates: start: 20051016, end: 20060906
  2. PANACOD [Concomitant]
     Indication: PAIN
     Route: 048
  3. NORITREN [Concomitant]
     Indication: PAIN
     Route: 048
  4. BUPRENORPHINE HCL [Concomitant]
     Indication: PAIN
  5. ARCOXIA [Concomitant]
     Indication: PAIN
     Route: 048
  6. PANADOL FORTE [Concomitant]
     Indication: PAIN
     Route: 048
  7. BURANA [Concomitant]
     Indication: PAIN
     Route: 048

REACTIONS (2)
  - LUNG NEOPLASM MALIGNANT [None]
  - VISUAL DISTURBANCE [None]
